FAERS Safety Report 19500313 (Version 6)
Quarter: 2022Q3

REPORT INFORMATION
  Report Type: Report from Study
  Country: CN (occurrence: None)
  Receive Date: 20210707
  Receipt Date: 20220722
  Transmission Date: 20221026
  Serious: Yes (Hospitalization)
  Sender: FDA-Public Use
  Company Number: CN-ROCHE-2845042

PATIENT
  Age: 49 Year
  Sex: Female
  Weight: 48 kg

DRUGS (50)
  1. PLACEBO [Suspect]
     Active Substance: UNSPECIFIED INGREDIENT
     Indication: Non-small cell lung cancer stage IV
     Dosage: LAST DOSE OF STUDY DRUG ADMIN PRIOR SAE RECEIVED ON 18/MAY/2021.
     Route: 041
     Dates: start: 20200729
  2. BEVACIZUMAB [Suspect]
     Active Substance: BEVACIZUMAB
     Indication: Non-small cell lung cancer stage IV
     Dosage: DOSE LAST STUDY DRUG ADMIN PRIOR SAE IS 705 MG ON 18/MAY/2021
     Route: 042
     Dates: start: 20200729
  3. CARBOPLATIN [Suspect]
     Active Substance: CARBOPLATIN
     Indication: Non-small cell lung cancer stage IV
     Dosage: LAST STUDY DRUG DOSE ADMIN PRIOR TO SAE: 550 MG ON 05/NOV/2020
     Route: 042
     Dates: start: 20200729
  4. PEMETREXED [Suspect]
     Active Substance: PEMETREXED
     Indication: Non-small cell lung cancer stage IV
     Dosage: START DATE OF MOST RECENT DOSE OF STUDY DRUG PRIOR TO SAE: 18-MAY-2021 DOSE 700 MG
     Route: 042
     Dates: start: 20200729
  5. OXYCONTIN [Suspect]
     Active Substance: OXYCODONE HYDROCHLORIDE
     Indication: Product used for unknown indication
     Route: 065
  6. CELEBREX [Concomitant]
     Active Substance: CELECOXIB
     Indication: Analgesic therapy
     Dates: start: 202006
  7. OXYCODONE HYDROCHLORIDE [Concomitant]
     Active Substance: OXYCODONE HYDROCHLORIDE
     Indication: Analgesic therapy
     Dates: start: 20200715
  8. OXYCODONE HYDROCHLORIDE [Concomitant]
     Active Substance: OXYCODONE HYDROCHLORIDE
     Dates: start: 20210428
  9. FOLIC ACID [Concomitant]
     Active Substance: FOLIC ACID
     Dates: start: 20200709
  10. GABAPENTIN [Concomitant]
     Active Substance: GABAPENTIN
     Route: 065
     Dates: start: 20200901, end: 20210418
  11. PANTOPRAZOLE SODIUM [Concomitant]
     Active Substance: PANTOPRAZOLE SODIUM
     Dates: start: 20210407, end: 20210407
  12. PALONOSETRON HYDROCHLORIDE [Concomitant]
     Active Substance: PALONOSETRON HYDROCHLORIDE
     Route: 065
     Dates: start: 20210407, end: 20210407
  13. DEXAMETHASONE SODIUM PHOSPHATE [Concomitant]
     Active Substance: DEXAMETHASONE SODIUM PHOSPHATE
     Route: 042
     Dates: start: 20210407, end: 20210407
  14. ONDANSETRON HYDROCHLORIDE [Concomitant]
     Active Substance: ONDANSETRON HYDROCHLORIDE
     Dates: start: 20210408, end: 20210412
  15. PANTOPRAZOLE SODIUM [Concomitant]
     Active Substance: PANTOPRAZOLE SODIUM
     Dates: start: 20210427, end: 20210427
  16. PALONOSETRON HYDROCHLORIDE [Concomitant]
     Active Substance: PALONOSETRON HYDROCHLORIDE
     Dates: start: 20210427, end: 20210427
  17. OXYCODONE HYDROCHLORIDE [Concomitant]
     Active Substance: OXYCODONE HYDROCHLORIDE
     Indication: Pain
     Dates: start: 20210428
  18. SODIUM PHOSPHATES RECTAL [Concomitant]
     Route: 065
     Dates: start: 20210419, end: 20210420
  19. SODIUM PHOSPHATES RECTAL [Concomitant]
     Dates: start: 20210629
  20. DEXAMETHASONE SODIUM PHOSPHATE [Concomitant]
     Active Substance: DEXAMETHASONE SODIUM PHOSPHATE
     Route: 042
     Dates: start: 20210427, end: 20210427
  21. DEXAMETHASONE SODIUM PHOSPHATE [Concomitant]
     Active Substance: DEXAMETHASONE SODIUM PHOSPHATE
     Route: 042
     Dates: start: 20210518, end: 20210518
  22. PREGABALIN [Concomitant]
     Active Substance: PREGABALIN
     Dates: start: 20210418
  23. DEXAMETHASONE SODIUM PHOSPHATE [Concomitant]
     Active Substance: DEXAMETHASONE SODIUM PHOSPHATE
     Route: 042
     Dates: start: 20210518, end: 20210518
  24. OMEPRAZOLE SODIUM [Concomitant]
     Active Substance: OMEPRAZOLE SODIUM
     Dates: start: 20210518, end: 20210518
  25. PALONOSETRON HYDROCHLORIDE [Concomitant]
     Active Substance: PALONOSETRON HYDROCHLORIDE
     Dates: start: 20210518, end: 20210518
  26. MEGESTROL ACETATE [Concomitant]
     Active Substance: MEGESTROL ACETATE
     Dates: start: 20210518
  27. SORBITOL ENEMA [Concomitant]
     Indication: Constipation
     Dates: start: 20200730
  28. LACTULOSE [Concomitant]
     Active Substance: LACTULOSE
     Indication: Constipation
     Dates: start: 20210408, end: 20210414
  29. LACTULOSE [Concomitant]
     Active Substance: LACTULOSE
     Dates: start: 20210623, end: 20210630
  30. METOCLOPRAMIDE HYDROCHLORIDE [Concomitant]
     Active Substance: METOCLOPRAMIDE HYDROCHLORIDE
     Dates: start: 20210603, end: 20210623
  31. METOCLOPRAMIDE HYDROCHLORIDE [Concomitant]
     Active Substance: METOCLOPRAMIDE HYDROCHLORIDE
     Dates: start: 20210629, end: 20210629
  32. TROPISETRON HYDROCHLORIDE [Concomitant]
     Active Substance: TROPISETRON HYDROCHLORIDE
     Dates: start: 20210603, end: 20210623
  33. TROPISETRON HYDROCHLORIDE [Concomitant]
     Active Substance: TROPISETRON HYDROCHLORIDE
     Dates: start: 20210702, end: 20210703
  34. TROPISETRON HYDROCHLORIDE [Concomitant]
     Active Substance: TROPISETRON HYDROCHLORIDE
     Dates: start: 20210706, end: 20210706
  35. LANSOPRAZOLE [Concomitant]
     Active Substance: LANSOPRAZOLE
     Dates: start: 20210603, end: 20210623
  36. OLANZAPINE [Concomitant]
     Active Substance: OLANZAPINE
     Dates: start: 20210623, end: 20210625
  37. OLANZAPINE [Concomitant]
     Active Substance: OLANZAPINE
     Dates: start: 20210706, end: 20210706
  38. OLANZAPINE [Concomitant]
     Active Substance: OLANZAPINE
     Dates: start: 20210702
  39. MOSAPRIDE [Concomitant]
     Active Substance: MOSAPRIDE
     Dates: start: 20210630
  40. MOXIBUSTION [Concomitant]
     Dates: start: 20210630, end: 20210705
  41. MOSAPRIDE CITRATE [Concomitant]
     Active Substance: MOSAPRIDE CITRATE
     Dates: start: 20210623, end: 20210625
  42. MOSAPRIDE CITRATE [Concomitant]
     Active Substance: MOSAPRIDE CITRATE
     Dates: start: 20210630
  43. SODIUM PHOSPHATES RECTAL [Concomitant]
     Dates: start: 20210629
  44. RHUBARB COMPOUND [Concomitant]
     Dates: start: 20210701, end: 20210701
  45. MAGNOLIA BARK [Concomitant]
     Dosage: EXHAUST PARTICLES
     Dates: start: 20210705, end: 20210706
  46. VITAMIN C [Concomitant]
     Active Substance: ASCORBIC ACID
     Dates: start: 20210629, end: 20210630
  47. VITAMIN B6 [Concomitant]
     Active Substance: PYRIDOXINE HYDROCHLORIDE
     Dates: start: 20210629, end: 20210630
  48. POTASSIUM CHLORIDE [Concomitant]
     Active Substance: POTASSIUM CHLORIDE
     Dates: start: 20210629, end: 20210701
  49. EGG PHOSPHOLIPIDS\GLYCERIN\SOYBEAN OIL [Concomitant]
     Active Substance: EGG PHOSPHOLIPIDS\GLYCERIN\SOYBEAN OIL
     Dates: start: 20210629, end: 20210630
  50. AMINO ACIDS, SOURCE UNSPECIFIED [Concomitant]
     Active Substance: AMINO ACIDS, SOURCE UNSPECIFIED
     Dates: start: 20210629, end: 20210630

REACTIONS (1)
  - Intestinal obstruction [Recovered/Resolved]

NARRATIVE: CASE EVENT DATE: 20210603
